FAERS Safety Report 8067082-X (Version None)
Quarter: 2012Q1

REPORT INFORMATION
  Report Type: 
  Country: None (occurrence: None)
  Receive Date: 20120124
  Receipt Date: 20120118
  Transmission Date: 20120608
  Serious: Yes (Other)
  Sender: FDA-Public Use
  Company Number: US-PFIZER INC-2012015810

PATIENT
  Age: 25 Year
  Sex: Male

DRUGS (2)
  1. PHENYTOIN [Suspect]
     Dosage: UNK
  2. DILANTIN-125 [Suspect]
     Dosage: 300 MG, 3X/DAY

REACTIONS (3)
  - GRAND MAL CONVULSION [None]
  - CONVULSION [None]
  - DRUG INEFFECTIVE [None]
